FAERS Safety Report 21786880 (Version 5)
Quarter: 2023Q4

REPORT INFORMATION
  Report Type: Report from Study
  Country: PR (occurrence: PR)
  Receive Date: 20221228
  Receipt Date: 20231011
  Transmission Date: 20240110
  Serious: Yes (Other)
  Sender: FDA-Public Use
  Company Number: PR-ABBVIE-4251032

PATIENT
  Sex: Female
  Weight: 99.79 kg

DRUGS (10)
  1. HUMIRA [Suspect]
     Active Substance: ADALIMUMAB
     Indication: Rheumatoid arthritis
     Dosage: FORM STRENGTH: 40 MILLIGRAM?LAST ADMIN DATE: ABOUT 2013?ADDITIONAL COMMENTS: NOT AT HAND BECAUSE ...
     Route: 058
     Dates: start: 2010
  2. HUMIRA [Suspect]
     Active Substance: ADALIMUMAB
     Dosage: FORM STRENGTH: 40 MILLIGRAM?FIRST ADMIN DATE: 2013
     Route: 058
  3. HUMIRA [Suspect]
     Active Substance: ADALIMUMAB
     Dosage: 40MG/0.4ML,?FORM STRENGTH: 40 MILLIGRAM
     Route: 058
  4. MODERNA COVID-19 VACCINE [Concomitant]
     Active Substance: ELASOMERAN
     Indication: COVID-19 immunisation
     Dosage: 2ND DOSE,?START DATE TEXT: UNKNOWN,?STOP DATE TEXT: UNKNOWN
     Route: 030
  5. MODERNA COVID-19 VACCINE [Concomitant]
     Active Substance: ELASOMERAN
     Indication: COVID-19 immunisation
     Dosage: 1ST DOSE,?START DATE TEXT: UNKNOWN,?STOP DATE TEXT: UNKNOWN
     Route: 030
  6. MODERNA COVID-19 VACCINE [Concomitant]
     Active Substance: ELASOMERAN
     Indication: COVID-19 immunisation
     Dosage: 3RD DOSE,?START DATE TEXT: UNKNOWN,?STOP DATE TEXT: UNKNOWN
     Route: 030
  7. RELAFEN [Concomitant]
     Active Substance: NABUMETONE
     Indication: Pain
     Dosage: FORM STRENGTH: 750 MILLIGRAM?START DATE TEXT: OVER 12 YEARS AGO (2011)
     Route: 048
  8. NEURONTIN [Concomitant]
     Active Substance: GABAPENTIN
     Indication: Muscle spasms
     Dosage: FORM STRENGTH: 400 MILLIGRAM?FREQUENCY TEXT: IN THE MORINING
     Route: 048
     Dates: start: 2020
  9. NEURONTIN [Concomitant]
     Active Substance: GABAPENTIN
     Indication: Muscle spasms
     Dosage: FORM STRENGTH: 800 MILLIGRAM?ONSET 2020
     Route: 048
     Dates: start: 2020
  10. METHOTREXATE [Concomitant]
     Active Substance: METHOTREXATE
     Indication: Rheumatoid arthritis
     Dosage: FORM STRENGTH: 2.5 MILLIGRAM, FIRST ADMIN DATE: 1997
     Route: 048

REACTIONS (3)
  - Osteoarthritis [Recovered/Resolved]
  - Ovarian cyst [Recovered/Resolved]
  - Osteoarthritis [Recovering/Resolving]

NARRATIVE: CASE EVENT DATE: 20120301
